FAERS Safety Report 5004615-1 (Version None)
Quarter: 2006Q2

REPORT INFORMATION
  Report Type: 
  Country: None (occurrence: None)
  Receive Date: 20060512
  Receipt Date: 20060428
  Transmission Date: 20061013
  Serious: Yes (Hospitalization)
  Sender: FDA-Public Use
  Company Number: 2006EU001468

PATIENT
  Age: 35 Year
  Sex: Female

DRUGS (3)
  1. FK506(TACROLIMUS CAPSULES)(TACROLIMUS) CAPSULE [Suspect]
     Indication: RENAL AND PANCREAS TRANSPLANT
     Dosage: 10 MG, ORAL
     Route: 048
     Dates: start: 20050112
  2. SIROLIMUS (SIROLIMUS) [Suspect]
     Indication: RENAL AND PANCREAS TRANSPLANT
     Dosage: 2 MG, ORAL
     Route: 048
     Dates: start: 20050112
  3. SULFAMETHOXAZOLE/TRIMETHOPRIM (SULFAMEHTOXAZOLE, TRIMETHOPRIM) [Concomitant]

REACTIONS (2)
  - DISEASE RECURRENCE [None]
  - LYMPHOCELE [None]
